FAERS Safety Report 18277224 (Version 3)
Quarter: 2020Q4

REPORT INFORMATION
  Report Type: Spontaneous
  Country: JP (occurrence: JP)
  Receive Date: 20200917
  Receipt Date: 20201021
  Transmission Date: 20210113
  Serious: Yes (Other)
  Sender: FDA-Public Use
  Company Number: JP-AMGEN-JPNSP2020149535

PATIENT
  Age: 49 Year
  Sex: Male

DRUGS (3)
  1. CORALAN [Suspect]
     Active Substance: IVABRADINE HYDROCHLORIDE
     Indication: CARDIAC FAILURE CHRONIC
     Dosage: 2.5 MILLIGRAM, BID
     Route: 048
     Dates: start: 20200312, end: 20200315
  2. DOBUTAMINE [Concomitant]
     Active Substance: DOBUTAMINE HYDROCHLORIDE
     Indication: PRODUCT USED FOR UNKNOWN INDICATION
     Dosage: UNK
     Route: 065
  3. PIMOBENDAN [Concomitant]
     Active Substance: PIMOBENDAN
     Indication: PRODUCT USED FOR UNKNOWN INDICATION
     Dosage: UNK
     Route: 065

REACTIONS (2)
  - Weight decreased [Not Recovered/Not Resolved]
  - Low cardiac output syndrome [Recovered/Resolved]

NARRATIVE: CASE EVENT DATE: 2020
